FAERS Safety Report 10309344 (Version 1)
Quarter: 2014Q3

REPORT INFORMATION
  Report Type: Spontaneous
  Country: US (occurrence: None)
  Receive Date: 20140714
  Receipt Date: 20140714
  Transmission Date: 20150326
  Serious: Yes (Other)
  Sender: FDA-Public Use
  Company Number: A1080520A

PATIENT
  Age: 14 Year
  Sex: Male

DRUGS (1)
  1. BENZOYL PEROXIDE. [Suspect]
     Active Substance: BENZOYL PEROXIDE
     Route: 061

REACTIONS (3)
  - Dry skin [None]
  - Aphagia [None]
  - Skin exfoliation [None]
